FAERS Safety Report 19289137 (Version 7)
Quarter: 2025Q1

REPORT INFORMATION
  Report Type: Spontaneous
  Country: US (occurrence: US)
  Receive Date: 20210521
  Receipt Date: 20250103
  Transmission Date: 20250408
  Serious: Yes (Other)
  Sender: PFIZER
  Company Number: US-PFIZER INC-2020500101

PATIENT
  Age: 69 Year
  Sex: Female

DRUGS (7)
  1. IBRANCE [Suspect]
     Active Substance: PALBOCICLIB
     Indication: Breast cancer metastatic
     Dosage: 125 MG, DAILY, DAYS 1-21 Q 28 DAYS
     Route: 048
     Dates: start: 20181113, end: 20190610
  2. IBRANCE [Suspect]
     Active Substance: PALBOCICLIB
     Dosage: 125 MG, DAILY, DAYS 1-21 Q 28 DAYS
     Route: 048
     Dates: start: 20190708
  3. IBRANCE [Suspect]
     Active Substance: PALBOCICLIB
     Dosage: 75 MG, DAILY, DAYS 1-21 ON, 7 DAYS OFF
     Route: 048
  4. IBRANCE [Suspect]
     Active Substance: PALBOCICLIB
     Dosage: 75 MG, DAILY, 3 DAYS ON AND 4 DAYS OFF
     Dates: start: 202403
  5. FASLODEX [Concomitant]
     Active Substance: FULVESTRANT
     Indication: Breast cancer female
     Dates: start: 20190708
  6. FASLODEX [Concomitant]
     Active Substance: FULVESTRANT
     Indication: Abdominal mass
     Dosage: 600MG Q28D X 12 CYCLES
  7. FEMARA [Concomitant]
     Active Substance: LETROZOLE
     Indication: Breast cancer female
     Dosage: 2.5 MG, DAILY
     Dates: start: 20181113, end: 20190610

REACTIONS (17)
  - Knee arthroplasty [Unknown]
  - Cerebrovascular accident [Unknown]
  - Off label use [Unknown]
  - Joint stiffness [Not Recovered/Not Resolved]
  - Arthralgia [Not Recovered/Not Resolved]
  - Platelet count abnormal [Unknown]
  - Fatigue [Unknown]
  - Feeling abnormal [Unknown]
  - Pain in extremity [Unknown]
  - Loss of personal independence in daily activities [Unknown]
  - Back disorder [Unknown]
  - Arthritis [Unknown]
  - Sleep disorder [Unknown]
  - Depressed mood [Unknown]
  - Nasopharyngitis [Recovering/Resolving]
  - Nasal congestion [Unknown]
  - Cough [Unknown]

NARRATIVE: CASE EVENT DATE: 20240301
